FAERS Safety Report 4805509-4 (Version None)
Quarter: 2005Q4

REPORT INFORMATION
  Report Type: 
  Country: None (occurrence: None)
  Receive Date: 20051018
  Receipt Date: 20040728
  Transmission Date: 20060501
  Serious: Yes (Disabling)
  Sender: FDA-Public Use
  Company Number: HQWYE670330JUL04

PATIENT
  Sex: Female

DRUGS (1)
  1. PHENERGAN [Suspect]
     Dates: start: 20000720, end: 20000720

REACTIONS (2)
  - NONSPECIFIC REACTION [None]
  - PAIN [None]
